FAERS Safety Report 10415000 (Version 2)
Quarter: 2015Q4

REPORT INFORMATION
  Report Type: Report from Study
  Country: US (occurrence: US)
  Receive Date: 20140828
  Receipt Date: 20151110
  Transmission Date: 20160304
  Serious: No
  Sender: FDA-Public Use
  Company Number: US-AMGEN INC.-USASP2014064745

PATIENT
  Sex: Female

DRUGS (1)
  1. ENBREL [Suspect]
     Active Substance: ETANERCEPT
     Indication: RHEUMATOID ARTHRITIS
     Dosage: 50 MG, QWK
     Route: 065
     Dates: start: 20140528

REACTIONS (8)
  - Dizziness [Not Recovered/Not Resolved]
  - Foot deformity [Unknown]
  - Drug ineffective [Unknown]
  - Blood pressure abnormal [Not Recovered/Not Resolved]
  - Muscle spasms [Unknown]
  - Feeling abnormal [Not Recovered/Not Resolved]
  - Pyrexia [Unknown]
  - Pain [Unknown]

NARRATIVE: CASE EVENT DATE: 2014
